FAERS Safety Report 9171498 (Version 1)
Quarter: 2013Q1

REPORT INFORMATION
  Report Type: Report from Study
  Country: GB (occurrence: GB)
  Receive Date: 20130319
  Receipt Date: 20130319
  Transmission Date: 20140127
  Serious: Yes (Hospitalization)
  Sender: FDA-Public Use
  Company Number: GB-ROCHE-1203296

PATIENT
  Sex: Female
  Weight: 55 kg

DRUGS (2)
  1. RITUXIMAB [Suspect]
     Indication: RHEUMATOID ARTHRITIS
     Route: 065
     Dates: start: 20110601
  2. METHOTREXATE [Concomitant]
     Route: 065

REACTIONS (1)
  - Spinal fracture [Unknown]
